FAERS Safety Report 5301195-8 (Version None)
Quarter: 2007Q2

REPORT INFORMATION
  Report Type: 
  Country: None (occurrence: None)
  Receive Date: 20070418
  Receipt Date: 20070411
  Transmission Date: 20071010
  Serious: Yes (Life-Threatening, Other)
  Sender: FDA-Public Use
  Company Number: US-PFIZER INC-2007029355

PATIENT
  Sex: Female
  Weight: 83.9 kg

DRUGS (6)
  1. SINEQUAN [Suspect]
     Indication: DEPRESSION
  2. TRANXENE [Concomitant]
     Indication: MUSCLE SPASMS
  3. ACETYLSALICYLIC ACID SRT [Concomitant]
     Indication: CEREBROVASCULAR ACCIDENT
  4. DYAZIDE [Concomitant]
     Indication: HYPERTENSION
  5. ATENOLOL [Concomitant]
     Indication: BLOOD TRIGLYCERIDES INCREASED
  6. TRICOR [Concomitant]
     Indication: BLOOD TRIGLYCERIDES INCREASED

REACTIONS (3)
  - CONVULSION [None]
  - ROAD TRAFFIC ACCIDENT [None]
  - TARDIVE DYSKINESIA [None]
